FAERS Safety Report 10606904 (Version 1)
Quarter: 2014Q4

REPORT INFORMATION
  Report Type: Spontaneous
  Country: KR (occurrence: KR)
  Receive Date: 20141125
  Receipt Date: 20141125
  Transmission Date: 20150529
  Serious: Yes (Death, Hospitalization)
  Sender: FDA-Public Use
  Company Number: PHHY2014KR150080

PATIENT
  Age: 16 Year
  Sex: Female

DRUGS (6)
  1. METHOTREXATE [Suspect]
     Active Substance: METHOTREXATE
     Indication: ACUTE LYMPHOCYTIC LEUKAEMIA
     Dosage: 100 MG/M2, UNK
     Route: 037
  2. METHOTREXATE [Suspect]
     Active Substance: METHOTREXATE
     Dosage: 200 MG/M2, UNK
     Route: 037
  3. METHOTREXATE [Suspect]
     Active Substance: METHOTREXATE
     Dosage: 250 MG/M2, UNK
     Route: 037
  4. L-ASPARAGINASE [Concomitant]
     Active Substance: ASPARAGINASE
     Indication: ACUTE LYMPHOCYTIC LEUKAEMIA
     Route: 065
  5. METHOTREXATE [Suspect]
     Active Substance: METHOTREXATE
     Dosage: 150 MG/M2, UNK
     Route: 037
  6. VINCRISTINE [Concomitant]
     Active Substance: VINCRISTINE
     Indication: ACUTE LYMPHOCYTIC LEUKAEMIA
     Route: 065

REACTIONS (18)
  - Pain in extremity [Unknown]
  - Erythema [Recovering/Resolving]
  - Pyrexia [Recovering/Resolving]
  - Pharyngeal erythema [Recovering/Resolving]
  - Dyspnoea [Fatal]
  - Sepsis [Fatal]
  - Skin burning sensation [Recovering/Resolving]
  - Aspartate aminotransferase increased [Unknown]
  - Respiratory failure [Fatal]
  - Pulmonary oedema [Fatal]
  - Lung infiltration [Fatal]
  - Dermatitis bullous [Recovering/Resolving]
  - Tachypnoea [Fatal]
  - Staphylococcus test positive [Unknown]
  - Alanine aminotransferase increased [Unknown]
  - C-reactive protein increased [Unknown]
  - Palmar-plantar erythrodysaesthesia syndrome [Recovering/Resolving]
  - Pancytopenia [Unknown]
